FAERS Safety Report 5485268-5 (Version None)
Quarter: 2007Q4

REPORT INFORMATION
  Report Type: 
  Country: None (occurrence: None)
  Receive Date: 20071015
  Receipt Date: 20071002
  Transmission Date: 20080405
  Serious: Yes (Hospitalization, Disabling, Other)
  Sender: FDA-Public Use
  Company Number: FI-AMGEN-UK243776

PATIENT
  Sex: Male

DRUGS (17)
  1. ARANESP [Suspect]
     Indication: RENAL FAILURE CHRONIC
     Dates: start: 20030101, end: 20070904
  2. KEFZOL [Concomitant]
     Dates: start: 20070928, end: 20070928
  3. TAVANIC [Concomitant]
     Dates: start: 20050921, end: 20070723
  4. VANCOMYCIN HCL [Concomitant]
     Dates: start: 20070703
  5. VENOFER [Concomitant]
     Dates: start: 20050708
  6. DEXTROPROPOXYPHENE [Concomitant]
     Dates: start: 20050428, end: 20070904
  7. BISOPROLOL FUMARATE [Concomitant]
     Dates: start: 20050315
  8. DALACIN [Concomitant]
     Dates: start: 20050303, end: 20060928
  9. DIFLUCAN [Concomitant]
     Dates: start: 20050322, end: 20051219
  10. ISOSORBIDE DINITRATE [Concomitant]
     Dates: start: 20070919
  11. FRAGMIN [Concomitant]
     Dates: start: 20070209
  12. CEPHALEXIN [Concomitant]
     Dates: start: 20060929, end: 20070703
  13. PARATABS [Concomitant]
     Dates: start: 20070208
  14. CALCIUM [Concomitant]
     Dates: start: 20050205
  15. PLAVIX [Concomitant]
     Dates: start: 20040819
  16. ALFACALCIDOL [Concomitant]
     Dates: start: 20070424, end: 20070910
  17. VITAMINS [Concomitant]
     Dates: start: 20040729

REACTIONS (2)
  - APLASIA PURE RED CELL [None]
  - ERYTHROPLASIA [None]
